FAERS Safety Report 10041401 (Version 1)
Quarter: 2014Q1

REPORT INFORMATION
  Report Type: Spontaneous
  Country: PT (occurrence: PT)
  Receive Date: 20140327
  Receipt Date: 20140327
  Transmission Date: 20141002
  Serious: Yes (Life-Threatening)
  Sender: FDA-Public Use
  Company Number: PHHY2014PT036279

PATIENT
  Age: 61 Year
  Sex: Female
  Weight: 74 kg

DRUGS (1)
  1. VOLTAREN [Suspect]
     Indication: MYALGIA
     Dosage: 75 UKN, UNK
     Route: 048
     Dates: start: 201403

REACTIONS (4)
  - Pallor [Recovering/Resolving]
  - Asthenia [Recovering/Resolving]
  - Anaemia [Recovering/Resolving]
  - Melaena [Recovering/Resolving]
